FAERS Safety Report 6257773-5 (Version None)
Quarter: 2009Q3

REPORT INFORMATION
  Report Type: 
  Country: None (occurrence: None)
  Receive Date: 20090702
  Receipt Date: 20090625
  Transmission Date: 20100115
  Serious: Yes (Death, Hospitalization)
  Sender: FDA-Public Use
  Company Number: 2009JP002396

PATIENT
  Age: 35 Year
  Sex: Male
  Weight: 33 kg

DRUGS (38)
  1. PROGRAF [Suspect]
     Indication: RENAL TRANSPLANT
     Dosage: 0.3 MG, BID, ORAL; 0.75 MG, BID, ORAL; 0.6 MG, ORAL; 0.5 MG, ORAL; 0.3 MG, BID, ORAL; ORAL
     Route: 048
     Dates: start: 20010313, end: 20010528
  2. PROGRAF [Suspect]
     Indication: RENAL TRANSPLANT
     Dosage: 0.3 MG, BID, ORAL; 0.75 MG, BID, ORAL; 0.6 MG, ORAL; 0.5 MG, ORAL; 0.3 MG, BID, ORAL; ORAL
     Route: 048
     Dates: start: 20010529, end: 20021204
  3. PROGRAF [Suspect]
     Indication: RENAL TRANSPLANT
     Dosage: 0.3 MG, BID, ORAL; 0.75 MG, BID, ORAL; 0.6 MG, ORAL; 0.5 MG, ORAL; 0.3 MG, BID, ORAL; ORAL
     Route: 048
     Dates: start: 20021205, end: 20070315
  4. PROGRAF [Suspect]
     Indication: RENAL TRANSPLANT
     Dosage: 0.3 MG, BID, ORAL; 0.75 MG, BID, ORAL; 0.6 MG, ORAL; 0.5 MG, ORAL; 0.3 MG, BID, ORAL; ORAL
     Route: 048
     Dates: end: 20090212
  5. PROGRAF [Suspect]
     Indication: RENAL TRANSPLANT
     Dosage: 0.3 MG, BID, ORAL; 0.75 MG, BID, ORAL; 0.6 MG, ORAL; 0.5 MG, ORAL; 0.3 MG, BID, ORAL; ORAL
     Route: 048
     Dates: start: 20090217, end: 20090223
  6. PROGRAF [Suspect]
     Indication: RENAL TRANSPLANT
     Dosage: 0.3 MG, BID, ORAL; 0.75 MG, BID, ORAL; 0.6 MG, ORAL; 0.5 MG, ORAL; 0.3 MG, BID, ORAL; ORAL
     Route: 048
     Dates: start: 20070316
  7. CELLCEPT [Suspect]
     Indication: RENAL TRANSPLANT
     Dosage: 1 G, ORAL; 375 MG, BID, ORAL
     Route: 048
     Dates: start: 20010313, end: 20010528
  8. CELLCEPT [Suspect]
     Indication: RENAL TRANSPLANT
     Dosage: 1 G, ORAL; 375 MG, BID, ORAL
     Route: 048
     Dates: start: 20050123, end: 20090205
  9. CELLCEPT [Suspect]
     Indication: RENAL TRANSPLANT
     Dosage: 1 G, ORAL; 375 MG, BID, ORAL
     Route: 048
     Dates: start: 20010529
  10. MEDROL [Suspect]
     Indication: RENAL TRANSPLANT
     Dosage: 500 MG, ORAL; 6 MG, UID/QD, ORAL; 250 MG, ORAL; 8 MG, ORAL; 6 MG, ORAL; 6 MG, UID/QD, ORAL
     Route: 048
     Dates: start: 20010313, end: 20081124
  11. MEDROL [Suspect]
     Indication: RENAL TRANSPLANT
     Dosage: 500 MG, ORAL; 6 MG, UID/QD, ORAL; 250 MG, ORAL; 8 MG, ORAL; 6 MG, ORAL; 6 MG, UID/QD, ORAL
     Route: 048
     Dates: end: 20090418
  12. MEDROL [Suspect]
     Indication: RENAL TRANSPLANT
     Dosage: 500 MG, ORAL; 6 MG, UID/QD, ORAL; 250 MG, ORAL; 8 MG, ORAL; 6 MG, ORAL; 6 MG, UID/QD, ORAL
     Route: 048
     Dates: start: 20081202
  13. MEDROL [Suspect]
     Indication: RENAL TRANSPLANT
     Dosage: 500 MG, ORAL; 6 MG, UID/QD, ORAL; 250 MG, ORAL; 8 MG, ORAL; 6 MG, ORAL; 6 MG, UID/QD, ORAL
     Route: 048
     Dates: start: 20090215
  14. MEDROL [Suspect]
     Indication: RENAL TRANSPLANT
     Dosage: 500 MG, ORAL; 6 MG, UID/QD, ORAL; 250 MG, ORAL; 8 MG, ORAL; 6 MG, ORAL; 6 MG, UID/QD, ORAL
     Route: 048
     Dates: start: 20090306
  15. MEDROL [Suspect]
     Indication: RENAL TRANSPLANT
     Dosage: 500 MG, ORAL; 6 MG, UID/QD, ORAL; 250 MG, ORAL; 8 MG, ORAL; 6 MG, ORAL; 6 MG, UID/QD, ORAL
     Route: 048
     Dates: start: 20090313
  16. CARVEDILOL [Concomitant]
  17. MARZULENE S (LEVOGLUTAMIDE, SODIUM GUALENATE) GRANULE [Concomitant]
  18. LAC B (LACTOBACILLUS BIFIDUS, LYOPHILIZED) GRANULE [Concomitant]
  19. LOCHOL (FLUVASTATIN) TABLET [Concomitant]
  20. MICARDIS [Concomitant]
  21. AMLODIN (AMLODIPINE BESILATE) ORODISPERSIBLE CR TABLET [Concomitant]
  22. HANGE-SHASHIN-TO POWDER [Concomitant]
  23. SINGULAIR (MONTELUKAST) TABLET [Concomitant]
  24. AMBROXOL HYDROCHLORIDE (AMBROXOL HYDROCHLORIDE) CAPSULE [Concomitant]
  25. MUCODYNE (CARBOCISTEINE) TABLET [Concomitant]
  26. SALMETEROL/FLUTICASONPROPIONAAT (SALMETEROL XINAFOATE, FLUTICASONE PRO [Concomitant]
  27. PREDNISOLONE [Concomitant]
  28. FLUTIDE (FLUTICASONE PROPIONATE) FORMULATION UNKNOWN [Concomitant]
  29. HOKUNALIN (TULOBUTEROL HYDROCHLORIDE) TAPE [Concomitant]
  30. URINORM (BENZBROMARONE) TABLET [Concomitant]
  31. DICHLOTRIDE TABLET [Concomitant]
  32. GASTER (FAMOTIDINE) FORMULATION UNKNOWN [Concomitant]
  33. EPADEL (ETHYL ICOSAPENTATE) FORMULATION UNKNOWN [Concomitant]
  34. CRAVIT (LEVOFLOXACIN) EYE DROP [Concomitant]
  35. HYALEIN (HYALURONATE SODIUM) EYE DROP [Concomitant]
  36. FLUMETHOLON (FLUOROMETHOLONE) EYE DROP [Concomitant]
  37. TARIVID (OFLOXACIN) EYE DROP [Concomitant]
  38. ROCEPHIN [Concomitant]

REACTIONS (20)
  - CONDITION AGGRAVATED [None]
  - DECREASED APPETITE [None]
  - DEHYDRATION [None]
  - DIARRHOEA [None]
  - DISORIENTATION [None]
  - DYSPNOEA [None]
  - ELECTROENCEPHALOGRAM ABNORMAL [None]
  - HAEMODIALYSIS [None]
  - HEADACHE [None]
  - HIV TEST POSITIVE [None]
  - ILEUS [None]
  - JC VIRUS INFECTION [None]
  - MELAENA [None]
  - PANIC REACTION [None]
  - PERITONITIS [None]
  - PROGRESSIVE MULTIFOCAL LEUKOENCEPHALOPATHY [None]
  - PYREXIA [None]
  - RESPIRATORY FAILURE [None]
  - STAPHYLOCOCCAL INFECTION [None]
  - TREMOR [None]
